FAERS Safety Report 4541741-5 (Version None)
Quarter: 2004Q4

REPORT INFORMATION
  Report Type: 
  Country: None (occurrence: None)
  Receive Date: 20041227
  Receipt Date: 20041210
  Transmission Date: 20050328
  Serious: Yes (Hospitalization)
  Sender: FDA-Public Use
  Company Number: 2004S1000278

PATIENT
  Age: 81 Year
  Sex: Male
  Weight: 63.0046 kg

DRUGS (6)
  1. ACITRETIN (ACITRETIN) [Suspect]
     Indication: PSORIASIS
     Dosage: PO
     Route: 048
     Dates: start: 20040722, end: 20040723
  2. MONOPLUS [Concomitant]
  3. QUESTRAN LIGHT [Concomitant]
  4. TEMAZE [Concomitant]
  5. LANOXIN [Concomitant]
  6. DILATREND [Concomitant]

REACTIONS (4)
  - DERMATITIS EXFOLIATIVE [None]
  - HYPERGLYCAEMIA [None]
  - HYPERTENSION [None]
  - JAUNDICE [None]
